FAERS Safety Report 10950235 (Version 10)
Quarter: 2016Q3

REPORT INFORMATION
  Report Type: Spontaneous
  Country: US (occurrence: US)
  Receive Date: 20150324
  Receipt Date: 20160919
  Transmission Date: 20161109
  Serious: Yes (Congenital Anomaly, Other)
  Sender: FDA-Public Use
  Company Number: US-ELI_LILLY_AND_COMPANY-US201503005337

PATIENT
  Age: 1 Year

DRUGS (1)
  1. PROZAC [Suspect]
     Active Substance: FLUOXETINE HYDROCHLORIDE
     Indication: PRODUCT USED FOR UNKNOWN INDICATION
     Dosage: UNK UNK, UNKNOWN
     Route: 065

REACTIONS (11)
  - Headache [Unknown]
  - Atrial septal defect [Unknown]
  - Cardiac murmur [Unknown]
  - Chest pain [Unknown]
  - Palpitations [Unknown]
  - Chest pain [Unknown]
  - Dizziness [Unknown]
  - Acute myocardial infarction [Unknown]
  - Foetal exposure during pregnancy [Recovered/Resolved]
  - Tachycardia [Unknown]
  - Dyspnoea [Unknown]

NARRATIVE: CASE EVENT DATE: 200210
